FAERS Safety Report 12324671 (Version 1)
Quarter: 2016Q2

REPORT INFORMATION
  Report Type: Report from Study
  Country: US (occurrence: US)
  Receive Date: 20160502
  Receipt Date: 20160502
  Transmission Date: 20160815
  Serious: No
  Sender: FDA-Public Use
  Company Number: US-ABBVIE-15P-163-1419837-00

PATIENT
  Sex: Male

DRUGS (2)
  1. BUPROPION HCL [Concomitant]
     Active Substance: BUPROPION HYDROCHLORIDE
     Indication: PRODUCT USED FOR UNKNOWN INDICATION
     Route: 048
  2. ANDROGEL [Suspect]
     Active Substance: TESTOSTERONE
     Indication: HYPOGONADISM
     Dosage: 2 PUMP PRESSES TO UPPER SHOULDERS AND CHEST ONE TIME DAILY
     Route: 061
     Dates: start: 20150611

REACTIONS (2)
  - Drug administration error [Unknown]
  - Incorrect route of drug administration [Unknown]
